FAERS Safety Report 4350857-8 (Version None)
Quarter: 2004Q2

REPORT INFORMATION
  Report Type: 
  Country: None (occurrence: None)
  Receive Date: 20040427
  Receipt Date: 20040413
  Transmission Date: 20050107
  Serious: Yes (Death, Hospitalization)
  Sender: FDA-Public Use
  Company Number: A02200400813

PATIENT
  Age: 78 Year
  Sex: Male

DRUGS (3)
  1. PLAVIX [Suspect]
     Indication: CEREBROVASCULAR ACCIDENT
     Dosage: 75 MG OD
     Route: 048
     Dates: start: 20040123, end: 20040210
  2. KARDEGIC - (ACETYLSALICYLATE LYSINE) - POWDER - 75 MG [Suspect]
     Indication: CEREBROVASCULAR ACCIDENT
     Dosage: 75 MG OD   (DURATION: A FEW WEEKS)
     Route: 048
     Dates: start: 20040124, end: 20040201
  3. PAROXETINE HCL [Suspect]
     Indication: DEPRESSION
     Dosage: 20 MG OD
     Route: 048
     Dates: start: 20040123, end: 20040210

REACTIONS (7)
  - CHOLESTASIS [None]
  - CYTOLYTIC HEPATITIS [None]
  - DISSEMINATED INTRAVASCULAR COAGULATION [None]
  - HEPATITIS [None]
  - HEPATITIS FULMINANT [None]
  - POST PROCEDURAL HAEMATOMA [None]
  - RENAL FAILURE [None]
